FAERS Safety Report 15449853 (Version 1)
Quarter: 2018Q4

REPORT INFORMATION
  Report Type: Other
  Country: GB (occurrence: GB)
  Receive Date: 20181001
  Receipt Date: 20181001
  Transmission Date: 20190204
  Serious: Yes (Other)
  Sender: FDA-Public Use
  Company Number: GB-ASPEN-GLO2018GB009576

PATIENT
  Age: 74 Year

DRUGS (2)
  1. DEXAMETHASONE. [Suspect]
     Active Substance: DEXAMETHASONE
     Indication: PLASMA CELL MYELOMA
     Dosage: 2 DOSE, WEEKLY. 5 CYCLES
     Route: 042
     Dates: start: 201105
  2. BORTEZOMIB. [Suspect]
     Active Substance: BORTEZOMIB
     Indication: PLASMA CELL MYELOMA
     Dosage: 2 DOSE, WEEKLY.  5 CYCLES.
     Route: 042
     Dates: start: 201105, end: 201206

REACTIONS (2)
  - Plasma cell myeloma [Unknown]
  - Neuropathy peripheral [Unknown]

NARRATIVE: CASE EVENT DATE: 201206
